FAERS Safety Report 23977098 (Version 9)
Quarter: 2024Q3

REPORT INFORMATION
  Report Type: Spontaneous
  Country: US (occurrence: US)
  Receive Date: 20240614
  Receipt Date: 20240916
  Transmission Date: 20241017
  Serious: Yes (Hospitalization, Other)
  Sender: GILEAD
  Company Number: US-GILEAD-2024-0677330

PATIENT
  Age: 51 Year
  Sex: Male

DRUGS (25)
  1. LENACAPAVIR [Suspect]
     Active Substance: LENACAPAVIR
     Indication: HIV infection
     Dosage: 927 MG, ONCE
     Route: 058
     Dates: start: 20240611, end: 20240611
  2. LENACAPAVIR [Suspect]
     Active Substance: LENACAPAVIR
     Dosage: 600 MG, ONCE
     Route: 048
     Dates: start: 20240611
  3. PRINIVIL [Suspect]
     Active Substance: LISINOPRIL
     Indication: Product used for unknown indication
     Dosage: 40 MG
     Route: 048
     Dates: start: 20240311, end: 20240614
  4. SYMTUZA [Concomitant]
     Active Substance: COBICISTAT\DARUNAVIR\EMTRICITABINE\TENOFOVIR ALAFENAMIDE
     Indication: HIV infection
     Dosage: UNK
     Route: 065
     Dates: start: 202402
  5. SYMTUZA [Concomitant]
     Active Substance: COBICISTAT\DARUNAVIR\EMTRICITABINE\TENOFOVIR ALAFENAMIDE
     Dosage: 10 MG, QD
     Dates: start: 20240514, end: 20240603
  6. SYMTUZA [Concomitant]
     Active Substance: COBICISTAT\DARUNAVIR\EMTRICITABINE\TENOFOVIR ALAFENAMIDE
     Dosage: 10 MG,  TAKE 1 TABLET BY MOUTH 1 (ONE) TIME EACH DAY.
     Route: 048
     Dates: start: 20240603
  7. EPCLUSA [Concomitant]
     Active Substance: SOFOSBUVIR\VELPATASVIR
     Dosage: TAKE 5 ML (500,000 UNITS TOTAL) BY MOUTH IN THE MORNING, AT NOON, IN THE EVENING AND AT BEDTIME FOR
     Route: 048
  8. DORAVIRINE [Concomitant]
     Active Substance: DORAVIRINE
     Indication: HIV infection
     Dosage: UNK
     Dates: start: 202402
  9. WELLBUTRIN [Concomitant]
     Active Substance: BUPROPION HYDROCHLORIDE
     Indication: Depression
     Dosage: 150 MG, 1 TABLET (150 MG TOTAL) BY MOUTH IN THE MORNING.
     Route: 048
     Dates: start: 20240523
  10. NORVASC [Concomitant]
     Active Substance: AMLODIPINE BESYLATE
     Indication: Hypertension
     Dosage: TAKE 1 TABLET (5 MG TOTAL) BY MOUTH 1 (ONE) TIME EACH DAY.
     Route: 048
     Dates: start: 20240319
  11. SEPTRA [Concomitant]
     Active Substance: SULFAMETHOXAZOLE\TRIMETHOPRIM
     Dosage: 1 DOSAGE FORM, QD
     Route: 048
  12. LIDODERM [Concomitant]
     Active Substance: LIDOCAINE
     Dosage: 1 PATCH ON THE SKIN 1 (ONE) TIME EACH DAY. APPLY TO PAINFUL AREA 12 HOURS PER DAY, REMOVE FOR 12 HOU
     Dates: start: 20240523
  13. GABAPENTIN [Concomitant]
     Active Substance: GABAPENTIN
     Dosage: 300 MG
  14. VALACYCLOVIR HYDROCHLORIDE [Concomitant]
     Active Substance: VALACYCLOVIR HYDROCHLORIDE
     Dosage: 1000 MG
     Dates: start: 202403
  15. AZITHROMYCIN [Concomitant]
     Active Substance: AZITHROMYCIN
  16. PREZCOBIX [Concomitant]
     Active Substance: COBICISTAT\DARUNAVIR ETHANOLATE
     Dosage: 100 MG, QD
     Route: 048
     Dates: start: 20240523
  17. PIFELTRO [Concomitant]
     Active Substance: DORAVIRINE
     Dosage: 100 MG, QD
     Route: 048
     Dates: start: 20240311
  18. BARACLUDE [Concomitant]
     Active Substance: ENTECAVIR
     Dosage: 1 MG, QD
     Route: 048
     Dates: start: 20240523
  19. DIFLUCAN [Concomitant]
     Active Substance: FLUCONAZOLE
     Dosage: 200 MG, TAKE 1 TABLET (200 MG TOTAL) BY MOUTH 1 (ONE) TIME EACH DAY.
     Route: 048
     Dates: start: 20240311, end: 20240614
  20. RUKOBIA [Concomitant]
     Active Substance: FOSTEMSAVIR TROMETHAMINE
     Dosage: 600 MG, BID
     Route: 048
     Dates: start: 20240523, end: 20240603
  21. METHYL SALICYLATE [Concomitant]
     Active Substance: METHYL SALICYLATE
     Dosage: APPLY TO NECK TOPICALLY IN THE MORNING, AT NOON AND IN THE EVENING AS NEEDED
     Route: 061
     Dates: start: 20240311, end: 20240614
  22. BACTRIM DS [Concomitant]
     Active Substance: SULFAMETHOXAZOLE\TRIMETHOPRIM
     Dosage: 160 MG, QD
     Dates: start: 20240514, end: 20240614
  23. NYSTOP [Concomitant]
     Active Substance: NYSTATIN
     Dosage: TAKE S M L (500,000 UNITS TOTAO BY MOUTH IN THE MORNING, AT NOON, IN THE EVENING AND AT BEDTIME FOR
     Route: 048
     Dates: start: 20240614
  24. UNASYN [Concomitant]
     Active Substance: AMPICILLIN SODIUM\SULBACTAM SODIUM
     Dosage: UNK
     Dates: start: 202402
  25. AUGMENTIN [Concomitant]
     Active Substance: AMOXICILLIN\CLAVULANATE POTASSIUM
     Dosage: UNK
     Dates: start: 202403

REACTIONS (5)
  - Angioedema [Recovering/Resolving]
  - Fatigue [Unknown]
  - Dizziness [Unknown]
  - Hypersensitivity [Unknown]
  - Nodule [Unknown]

NARRATIVE: CASE EVENT DATE: 20240611
